FAERS Safety Report 23175029 (Version 4)
Quarter: 2024Q4

REPORT INFORMATION
  Report Type: Spontaneous
  Country: JP (occurrence: JP)
  Receive Date: 20231112
  Receipt Date: 20241219
  Transmission Date: 20250115
  Serious: Yes (Life-Threatening, Hospitalization, Disabling, Congenital Anomaly, Other)
  Sender: TAKEDA
  Company Number: JP-TAKEDA-2023TJP014823

PATIENT
  Sex: Female
  Weight: 5.4 kg

DRUGS (1)
  1. VPRIV [Suspect]
     Active Substance: VELAGLUCERASE ALFA
     Indication: Gaucher^s disease
     Dosage: 2 DOSAGE FORM, Q2WEEKS
     Dates: start: 20230718

REACTIONS (5)
  - Interstitial lung disease [Unknown]
  - Pneumonia aspiration [Unknown]
  - Gaucher^s disease [Recovered/Resolved]
  - Pneumonia mycoplasmal [Recovered/Resolved]
  - Rhinovirus infection [Unknown]

NARRATIVE: CASE EVENT DATE: 20241101
